FAERS Safety Report 7799408-6 (Version None)
Quarter: 2011Q4

REPORT INFORMATION
  Report Type: 
  Country: None (occurrence: None)
  Receive Date: 20111004
  Receipt Date: 20110919
  Transmission Date: 20120403
  Serious: Yes (Hospitalization)
  Sender: FDA-Public Use
  Company Number: 1000024007

PATIENT
  Age: 47 Year
  Sex: Female

DRUGS (4)
  1. ZIPRASIDONE HCL [Suspect]
     Dosage: (1.2 GM,ONCE)
  2. VENLAFAXINE HCL [Concomitant]
  3. DIAZEPAM [Suspect]
     Dosage: (250 MG,ONCE)
  4. PROPRANOLOL HYDROCHLORIDE [Suspect]
     Dosage: 120 MG (40 MG,3 IN 1 D)

REACTIONS (3)
  - ELECTROCARDIOGRAM QT PROLONGED [None]
  - SINUS BRADYCARDIA [None]
  - OVERDOSE [None]
